FAERS Safety Report 9644885 (Version 3)
Quarter: 2014Q1

REPORT INFORMATION
  Report Type: Report from Study
  Country: JP (occurrence: JP)
  Receive Date: 20131025
  Receipt Date: 20140328
  Transmission Date: 20141002
  Serious: Yes (Other)
  Sender: FDA-Public Use
  Company Number: PHHY2012JP095462

PATIENT
  Age: 62 Year
  Sex: Male

DRUGS (7)
  1. AMN107 [Suspect]
     Indication: CHRONIC MYELOID LEUKAEMIA
     Dosage: 600 MG/DAY
     Route: 048
     Dates: start: 20110926, end: 20111109
  2. AMN107 [Suspect]
     Dosage: 600 MG/DAY
     Route: 048
     Dates: start: 20111117, end: 20120215
  3. AMN107 [Suspect]
     Dosage: 600 MG/DAY
     Route: 048
     Dates: start: 20120229, end: 20120313
  4. AMN107 [Suspect]
     Dosage: 600 MG/DAY
     Route: 048
     Dates: start: 20120328, end: 20131023
  5. LIVALO [Concomitant]
     Dosage: 5 MG
     Route: 048
     Dates: start: 200911, end: 20131031
  6. URSO [Concomitant]
     Dosage: 150 MG, DAILY
  7. GLYCYRON [Concomitant]
     Dosage: 6 DF, FOR 1 WEEK

REACTIONS (4)
  - Gamma-glutamyltransferase increased [Not Recovered/Not Resolved]
  - Hepatic function abnormal [Recovering/Resolving]
  - Vitreous floaters [Recovering/Resolving]
  - Electrocardiogram T wave abnormal [Not Recovered/Not Resolved]
